FAERS Safety Report 25753614 (Version 4)
Quarter: 2025Q4

REPORT INFORMATION
  Report Type: Spontaneous
  Country: US (occurrence: US)
  Receive Date: 20250903
  Receipt Date: 20251021
  Transmission Date: 20260118
  Serious: No
  Sender: PFIZER
  Company Number: US-PFIZER INC-202500172846

PATIENT
  Age: 74 Year
  Sex: Female
  Weight: 84.37 kg

DRUGS (1)
  1. PAXLOVID [Suspect]
     Active Substance: NIRMATRELVIR\RITONAVIR
     Indication: COVID-19 treatment
     Dosage: 2 WHITE TABLETS AND 1 RED TABLET
     Dates: start: 20250827

REACTIONS (2)
  - Product blister packaging issue [Unknown]
  - Incorrect dose administered [Unknown]
